FAERS Safety Report 4988149-6 (Version None)
Quarter: 2006Q2

REPORT INFORMATION
  Report Type: 
  Country: None (occurrence: None)
  Receive Date: 20060501
  Receipt Date: 20050912
  Transmission Date: 20061013
  Serious: Yes (Hospitalization, Other)
  Sender: FDA-Public Use
  Company Number: US-MERCK-0509USA01566

PATIENT
  Age: 56 Year
  Sex: Female
  Weight: 91 kg

DRUGS (1)
  1. VIOXX [Suspect]
     Indication: ANALGESIC EFFECT
     Route: 048
     Dates: start: 20000101, end: 20010401

REACTIONS (12)
  - ASTHENIA [None]
  - CELLULITIS [None]
  - CEREBROVASCULAR ACCIDENT [None]
  - DIABETES MELLITUS [None]
  - DIZZINESS [None]
  - DYSURIA [None]
  - HYPERCHOLESTEROLAEMIA [None]
  - HYPERTENSION [None]
  - INTERTRIGO [None]
  - LOSS OF CONSCIOUSNESS [None]
  - OEDEMA GENITAL [None]
  - WEIGHT DECREASED [None]
